FAERS Safety Report 9720772 (Version 4)
Quarter: 2014Q2

REPORT INFORMATION
  Report Type: Report from Study
  Country: DE (occurrence: DE)
  Receive Date: 20131129
  Receipt Date: 20140410
  Transmission Date: 20141212
  Serious: Yes (Hospitalization)
  Sender: FDA-Public Use
  Company Number: PHHO2013DE015542

PATIENT
  Sex: 0

DRUGS (6)
  1. CICLOSPORIN [Suspect]
     Dosage: PER BLOOD LEVEL
     Dates: start: 20131104
  2. EVEROLIMUS [Suspect]
     Indication: RENAL TRANSPLANT
     Dosage: PER BLOOD LEVEL
     Dates: start: 20131104
  3. SIMULECT [Suspect]
     Indication: RENAL TRANSPLANT
     Dosage: 20 MG, UNK
     Route: 042
     Dates: start: 20131104
  4. TACROLIMUS [Suspect]
     Indication: RENAL TRANSPLANT
     Dosage: 8 MG, UNK (4MG-0-4MG)
     Dates: start: 20131230
  5. URBASON                                 /GFR/ [Suspect]
     Indication: RENAL TRANSPLANT
     Dosage: 8 MG, UNK (8MG-0-0)
     Dates: start: 20131104
  6. AZATHIOPRIN [Concomitant]
     Dosage: 50 MG, UNK ((50 MG-0-0))
     Dates: start: 20131231

REACTIONS (4)
  - Abdominal wall disorder [Recovered/Resolved]
  - Lymphocele [Recovered/Resolved]
  - Post procedural haematoma [Recovered/Resolved]
  - Post procedural haemorrhage [Recovered/Resolved]
